FAERS Safety Report 7381703-6 (Version None)
Quarter: 2011Q1

REPORT INFORMATION
  Report Type: 
  Country: None (occurrence: None)
  Receive Date: 20110329
  Receipt Date: 20110321
  Transmission Date: 20110831
  Serious: Yes (Disabling)
  Sender: FDA-Public Use
  Company Number: FR-PFIZER INC-2010058867

PATIENT
  Age: 15 Year
  Sex: Male

DRUGS (15)
  1. PARACETAMOL [Concomitant]
  2. LEXOMIL [Concomitant]
  3. MABTHERA [Suspect]
     Dosage: 650 MG, SINGLE
     Route: 042
     Dates: start: 20091223
  4. ONCOVIN [Suspect]
     Dosage: 2 MG, ON DAYS 8 AND 15.
     Route: 042
     Dates: start: 20100120
  5. ONCOVIN [Suspect]
     Dosage: 1.75 MG, SINGLE
     Route: 042
     Dates: start: 20091223
  6. FASTURTEC [Concomitant]
  7. ATARAX [Concomitant]
  8. BACTRIM [Concomitant]
  9. ENDOXAN [Suspect]
     Dosage: 520 MG, SINGLE
     Route: 042
     Dates: start: 20091223
  10. LOVENOX [Concomitant]
  11. ADRIBLASTINE [Suspect]
     Dosage: 68 MG, ON DAYS 1 AND 15
     Route: 042
     Dates: start: 20100215
  12. VEPESID [Suspect]
     Dosage: 210 MG, FROM DA 1 TO 5
     Route: 042
     Dates: start: 20100113, end: 20100117
  13. SOLUPRED [Suspect]
     Dosage: 60 MG, 2X/DAY
     Dates: start: 20091223
  14. VEPESID [Suspect]
     Dosage: 220 MG, ON DAY 1 AND ON DAYS 3-5
     Route: 042
     Dates: start: 20100215
  15. LASIX [Concomitant]

REACTIONS (5)
  - DYSARTHRIA [None]
  - TREMOR [None]
  - MEMORY IMPAIRMENT [None]
  - DISORIENTATION [None]
  - NERVOUS SYSTEM DISORDER [None]
